FAERS Safety Report 6736161-9 (Version None)
Quarter: 2010Q2

REPORT INFORMATION
  Report Type: 
  Country: None (occurrence: None)
  Receive Date: 20100521
  Receipt Date: 20100510
  Transmission Date: 20101027
  Serious: Yes (Other)
  Sender: FDA-Public Use
  Company Number: US-PFIZER INC-2010059235

PATIENT
  Sex: Male

DRUGS (2)
  1. XALATAN [Suspect]
  2. TRAVATAN [Suspect]

REACTIONS (1)
  - HYPERSENSITIVITY [None]
